FAERS Safety Report 8852688 (Version 1)
Quarter: 2012Q4

REPORT INFORMATION
  Report Type: 
  Country: US (occurrence: US)
  Receive Date: 20121022
  Receipt Date: 20121022
  Transmission Date: 20130627
  Serious: No
  Sender: FDA-Public Use
  Company Number: US-VERTEX PHARMACEUTICAL INC.-2012-022905

PATIENT
  Sex: Male
  Weight: 86 kg

DRUGS (1)
  1. VX-950 [Suspect]
     Indication: HEPATITIS C
     Route: 048

REACTIONS (2)
  - Hypersensitivity [Recovered/Resolved]
  - Rash [Recovered/Resolved]
